FAERS Safety Report 5879758-0 (Version None)
Quarter: 2008Q3

REPORT INFORMATION
  Report Type: 
  Country: None (occurrence: None)
  Receive Date: 20080912
  Receipt Date: 20080903
  Transmission Date: 20090109
  Serious: Yes (Other)
  Sender: FDA-Public Use
  Company Number: US-JNJFOC-20080703245

PATIENT
  Sex: Male
  Weight: 86.18 kg

DRUGS (5)
  1. REMICADE [Suspect]
     Route: 042
  2. REMICADE [Suspect]
     Dosage: 2 INFUSIONS ON UNSPECIFIED DATES
     Route: 042
  3. REMICADE [Suspect]
     Indication: PSORIASIS
     Route: 042
  4. ZETIA [Concomitant]
  5. ALLOPURINOL [Concomitant]

REACTIONS (2)
  - TUBERCULOSIS [None]
  - WEIGHT DECREASED [None]
